FAERS Safety Report 7986449-9 (Version None)
Quarter: 2011Q4

REPORT INFORMATION
  Report Type: 
  Country: None (occurrence: None)
  Receive Date: 20111216
  Receipt Date: 20110714
  Transmission Date: 20120403
  Serious: No
  Sender: FDA-Public Use
  Company Number: US-BRISTOL-MYERS SQUIBB COMPANY-15902612

PATIENT
  Age: 75 Year
  Sex: Female

DRUGS (4)
  1. ABILIFY [Suspect]
     Indication: DEMENTIA
  2. ABILIFY [Suspect]
     Indication: DEMENTIA ALZHEIMER'S TYPE
  3. NAMENDA [Concomitant]
  4. CELEXA [Concomitant]

REACTIONS (1)
  - MEDICATION ERROR [None]
